FAERS Safety Report 16317704 (Version 5)
Quarter: 2022Q1

REPORT INFORMATION
  Report Type: Other
  Country: ES (occurrence: ES)
  Receive Date: 20190516
  Receipt Date: 20220114
  Transmission Date: 20220423
  Serious: Yes (Hospitalization)
  Sender: FDA-Public Use
  Company Number: ES-002147023-PHHY2019ES106538

PATIENT
  Age: 51 Year
  Sex: Male

DRUGS (19)
  1. FORMOTEROL FUMARATE [Suspect]
     Active Substance: FORMOTEROL FUMARATE
     Indication: Asthma
     Dosage: 2 DF, BID (TWO PUFFS CONTAINING FORMOTEROL/FLUTICASONE PROPIONATE 320 MIGROG/9 MICROG)
     Route: 055
     Dates: start: 201608
  2. FORMOTEROL FUMARATE [Suspect]
     Active Substance: FORMOTEROL FUMARATE
     Indication: Asthma
  3. FLUTICASONE PROPIONATE\SALMETEROL XINAFOATE [Suspect]
     Active Substance: FLUTICASONE PROPIONATE\SALMETEROL XINAFOATE
     Indication: Asthma
     Dosage: 2 DF, BID (TWO PUFFS CONTAINING SALMETEROL/FLUTICASONE PROPIONATE 22/250)
     Route: 055
     Dates: start: 201403
  4. FLUTICASONE PROPIONATE\SALMETEROL XINAFOATE [Suspect]
     Active Substance: FLUTICASONE PROPIONATE\SALMETEROL XINAFOATE
     Indication: Asthma
  5. OMALIZUMAB [Suspect]
     Active Substance: OMALIZUMAB
     Indication: Asthma
     Route: 065
  6. OMALIZUMAB [Suspect]
     Active Substance: OMALIZUMAB
     Indication: Asthma
  7. MONTELUKAST SODIUM [Suspect]
     Active Substance: MONTELUKAST SODIUM
     Indication: Asthma
     Route: 065
     Dates: start: 201403
  8. MONTELUKAST SODIUM [Suspect]
     Active Substance: MONTELUKAST SODIUM
     Indication: Asthma
  9. TIOTROPIUM BROMIDE [Suspect]
     Active Substance: TIOTROPIUM BROMIDE
     Indication: Asthma
     Route: 065
     Dates: start: 201403
  10. TIOTROPIUM BROMIDE [Suspect]
     Active Substance: TIOTROPIUM BROMIDE
     Indication: Asthma
  11. PREDNISONE [Suspect]
     Active Substance: PREDNISONE
     Indication: Asthma
     Route: 048
     Dates: start: 201403
  12. PREDNISONE [Suspect]
     Active Substance: PREDNISONE
     Indication: Asthma
     Dosage: 10-30 MG, QD
     Route: 048
     Dates: start: 201711
  13. PREDNISONE [Suspect]
     Active Substance: PREDNISONE
     Dosage: 5-10 MG, QD
     Route: 048
     Dates: start: 201503
  14. PREDNISONE [Suspect]
     Active Substance: PREDNISONE
     Dosage: 5-30 MG, QD
     Route: 048
     Dates: start: 201608
  15. LEBRIKIZUMAB [Suspect]
     Active Substance: LEBRIKIZUMAB
     Indication: Asthma
     Dosage: PART OF LAVOLTA CLINICAL TRIAL (DISCONTINUED WITH END OF LAVOLTA T)
     Route: 065
     Dates: start: 201503, end: 201608
  16. FLUTICASONE PROPIONATE [Suspect]
     Active Substance: FLUTICASONE PROPIONATE
     Indication: Asthma
     Dosage: TWO PUFFS CONTAINING FORMOTEROL/FLUTICASONE PROPIONATE 320 MIGROG/9 MICROG
     Route: 055
     Dates: start: 201608
  17. FLUTICASONE [Suspect]
     Active Substance: FLUTICASONE
     Indication: Asthma
     Dosage: 2 DF, BID (TWO PUFFS CONTAINING FORMOTEROL/FLUTICASONE PROPIONATE 320 MIGROG/9 MICROG)
     Route: 055
     Dates: start: 201403
  18. FLUTICASONE [Suspect]
     Active Substance: FLUTICASONE
     Indication: Asthma
  19. METRONIDAZOLE [Concomitant]
     Active Substance: METRONIDAZOLE
     Indication: Blastocystis infection
     Route: 065

REACTIONS (1)
  - Treatment failure [Unknown]
